FAERS Safety Report 10954639 (Version 2)
Quarter: 2015Q2

REPORT INFORMATION
  Report Type: Report from Study
  Country: FR (occurrence: FR)
  Receive Date: 20150325
  Receipt Date: 20150418
  Transmission Date: 20150821
  Serious: Yes (Hospitalization)
  Sender: FDA-Public Use
  Company Number: FR-B.I. PHARMACEUTICALS,INC./RIDGEFIELD-2015-BI-08594II

PATIENT
  Age: 64 Year
  Sex: Male
  Weight: 56.6 kg

DRUGS (13)
  1. COKENZEN [Concomitant]
     Active Substance: CANDESARTAN CILEXETIL\HYDROCHLOROTHIAZIDE
     Dosage: DOSE PER APPLICATION AND DAILY DOSE: 16 MG/12.5 MG
     Route: 048
     Dates: start: 20150115, end: 20150121
  2. EMEND [Concomitant]
     Active Substance: APREPITANT
     Indication: PROPHYLAXIS OF NAUSEA AND VOMITING
     Dosage: 125 MG
     Route: 065
     Dates: start: 20141230
  3. GLYCEROL\PARAFFIN [Concomitant]
     Active Substance: GLYCERIN\PARAFFIN
     Indication: SKIN TOXICITY
  4. GLYCEROL\PARAFFIN [Concomitant]
     Active Substance: GLYCERIN\PARAFFIN
     Indication: SKIN TOXICITY
     Dosage: ROUTE: CUTANEOUS
     Route: 050
     Dates: start: 20141204
  5. COKENZEN [Concomitant]
     Active Substance: CANDESARTAN CILEXETIL\HYDROCHLOROTHIAZIDE
     Indication: HYPERTENSION
     Dosage: STRENGTH ADN DAILY DOSE: 8MG/12.5MG 1 DAILY
     Route: 065
     Dates: start: 20141218, end: 20150114
  6. BIBW 2992 [Suspect]
     Active Substance: AFATINIB
     Indication: COLORECTAL CANCER METASTATIC
     Dosage: 40 MG
     Route: 048
     Dates: start: 20150114
  7. CETUXIMAB [Suspect]
     Active Substance: CETUXIMAB
     Dosage: DOSE PER APPLICATION: 500MG/M? NAMELY 840 MG DT AT DAY 1
     Route: 065
     Dates: start: 20150204
  8. BIBW 2992 [Suspect]
     Active Substance: AFATINIB
     Dosage: 30 MG
     Route: 048
     Dates: start: 20150204
  9. COKENZEN [Concomitant]
     Active Substance: CANDESARTAN CILEXETIL\HYDROCHLOROTHIAZIDE
     Dosage: DOSE PER APPLICATION AND DAILY DOSE: 16 MG/12.5 MG
     Route: 048
  10. COLD [Concomitant]
     Active Substance: ACETAMINOPHEN\CHLORPHENIRAMINE MALEATE\DEXTROMETHORPHAN HYDROBROMIDE\PHENYLEPHRINE HYDROCHLORIDE
     Indication: SKIN TOXICITY
     Dosage: ROUTE: CUTANEOUS
     Route: 050
     Dates: start: 20141204
  11. COLD [Concomitant]
     Active Substance: ACETAMINOPHEN\CHLORPHENIRAMINE MALEATE\DEXTROMETHORPHAN HYDROBROMIDE\PHENYLEPHRINE HYDROCHLORIDE
     Indication: PROPHYLAXIS
  12. GLYCEROL\PARAFFIN [Concomitant]
     Active Substance: GLYCERIN\PARAFFIN
     Indication: PROPHYLAXIS
     Route: 065
     Dates: start: 20141204
  13. CETUXIMAB [Suspect]
     Active Substance: CETUXIMAB
     Indication: COLORECTAL CANCER METASTATIC
     Dosage: 860 MG
     Route: 042
     Dates: start: 20141203

REACTIONS (2)
  - Gastroenteritis [Recovered/Resolved]
  - Gastroenteritis [Recovered/Resolved with Sequelae]

NARRATIVE: CASE EVENT DATE: 20150125
